FAERS Safety Report 4622959-X (Version None)
Quarter: 2005Q1

REPORT INFORMATION
  Report Type: 
  Country: None (occurrence: None)
  Receive Date: 20050329
  Receipt Date: 20031023
  Transmission Date: 20050727
  Serious: Yes (Hospitalization)
  Sender: FDA-Public Use
  Company Number: 9672

PATIENT
  Age: 18 Year
  Sex: Female

DRUGS (4)
  1. METHOTREXATE [Suspect]
     Indication: T-CELL TYPE ACUTE LEUKAEMIA
     Dosage: INJ/IT
     Route: 038
  2. VINCRISTINE [Suspect]
     Indication: T-CELL TYPE ACUTE LEUKAEMIA
     Dosage: INJ
  3. DAUNORUBICIN HCL [Concomitant]
  4. PREDNISONE TAB [Concomitant]

REACTIONS (7)
  - CEREBRAL ISCHAEMIA [None]
  - CORTICAL LAMINAR NECROSIS [None]
  - DRUG INTERACTION [None]
  - HYPERCALCAEMIA OF MALIGNANCY [None]
  - NEUROTOXICITY [None]
  - PARANEOPLASTIC SYNDROME [None]
  - TUMOUR LYSIS SYNDROME [None]
